FAERS Safety Report 19125016 (Version 3)
Quarter: 2021Q2

REPORT INFORMATION
  Report Type: Report from Study
  Country: None (occurrence: US)
  Receive Date: 20210413
  Receipt Date: 20210423
  Transmission Date: 20210717
  Serious: Yes (Hospitalization, Other)
  Sender: FDA-Public Use
  Company Number: US-ABBVIE-21K-163-3848754-00

PATIENT
  Sex: Male

DRUGS (1)
  1. CREON [Suspect]
     Active Substance: PANCRELIPASE AMYLASE\PANCRELIPASE LIPASE\PANCRELIPASE PROTEASE
     Indication: PRODUCT USED FOR UNKNOWN INDICATION
     Route: 048

REACTIONS (10)
  - Procedural complication [Unknown]
  - Malabsorption [Unknown]
  - Drug ineffective [Not Recovered/Not Resolved]
  - Rib fracture [Unknown]
  - Pneumonia [Unknown]
  - Cardiac disorder [Unknown]
  - Wrong product administered [Unknown]
  - Adverse event [Unknown]
  - Gastrointestinal disorder [Unknown]
  - Transfusion [Unknown]
